FAERS Safety Report 20628223 (Version 2)
Quarter: 2022Q2

REPORT INFORMATION
  Report Type: Spontaneous
  Country: US (occurrence: US)
  Receive Date: 20220323
  Receipt Date: 20220429
  Transmission Date: 20220721
  Serious: Yes (Other)
  Sender: FDA-Public Use
  Company Number: US-HERON THERAPEUTICS, INC-HRTX-2022-000760

PATIENT
  Age: 50 Year
  Sex: Male
  Weight: 97.52 kg

DRUGS (38)
  1. ZYNRELEF [Suspect]
     Active Substance: BUPIVACAINE\MELOXICAM
     Indication: Postoperative analgesia
     Dosage: 14 MILLILITER (400 MG BUPIVACAINE, 12 MG MELOXICAM), SINGLE
     Route: 065
     Dates: start: 20220307, end: 20220307
  2. CARISOPRODOL [Concomitant]
     Active Substance: CARISOPRODOL
     Indication: Pain
     Dosage: 350 MILLIGRAM, TID, PRN
     Dates: start: 20210812
  3. CARISOPRODOL [Concomitant]
     Active Substance: CARISOPRODOL
     Dosage: 350 MILLIGRAM, TID, PRN
     Dates: start: 20211116
  4. CARISOPRODOL [Concomitant]
     Active Substance: CARISOPRODOL
     Dosage: 350 MILLIGRAM, BID, PRN
     Route: 048
     Dates: start: 20220301
  5. TRAMADOL [Concomitant]
     Active Substance: TRAMADOL
     Indication: Pain
     Dosage: 50 MILLIGRAM, Q4H, PRN
     Route: 048
     Dates: start: 20211117
  6. TRAMADOL [Concomitant]
     Active Substance: TRAMADOL
     Dosage: 50 MILLIGRAM, Q4H,PRN
     Route: 048
     Dates: start: 20220125
  7. OXYCODONE [Concomitant]
     Active Substance: OXYCODONE
     Indication: Pain
     Dosage: 5-10 MILLIGRAM, Q6H
     Route: 048
     Dates: start: 20220301
  8. OXYCODONE [Concomitant]
     Active Substance: OXYCODONE
     Dosage: 5-10 MILLIGRAM, Q4H, PRN
     Route: 048
     Dates: start: 20220301
  9. COLACE [Concomitant]
     Active Substance: DOCUSATE SODIUM
     Indication: Product used for unknown indication
     Dosage: 100 MILLIGRAM, BID
     Route: 048
     Dates: start: 20220307
  10. BENADRYL [Concomitant]
     Active Substance: DIPHENHYDRAMINE HYDROCHLORIDE
     Indication: Pruritus
     Dosage: 50 MILLIGRAM, Q4H
     Route: 048
     Dates: start: 20220307
  11. PHENERGAN [Concomitant]
     Active Substance: PROMETHAZINE HYDROCHLORIDE
     Indication: Nausea
     Dosage: 25 MILLIGRAM, Q4H
     Route: 048
     Dates: start: 20220307
  12. DILAUDID [Concomitant]
     Active Substance: HYDROMORPHONE HYDROCHLORIDE
     Indication: Pain
     Dosage: 2 MILLIGRAM, Q4H
     Route: 042
     Dates: start: 20220307
  13. ZOFRAN [Concomitant]
     Active Substance: ONDANSETRON HYDROCHLORIDE
     Indication: Nausea
     Dosage: 4 MILLIGRAM, Q6H
     Route: 042
     Dates: start: 20220307
  14. XARELTO [Concomitant]
     Active Substance: RIVAROXABAN
     Indication: Product used for unknown indication
     Dosage: 10 MILLIGRAM, QD
     Route: 048
     Dates: start: 20220307
  15. VITAMIN D3 [Concomitant]
     Active Substance: CHOLECALCIFEROL
     Indication: Product used for unknown indication
     Dosage: 4000 INTERNATIONAL UNIT, QD
     Route: 048
     Dates: start: 20220307
  16. MAALOX PLUS EXTRA STRENGTH [Concomitant]
     Indication: Product used for unknown indication
     Dosage: 30 UNK, EVERY 2 HR
     Route: 048
     Dates: start: 20220307
  17. MILK OF MAGNESIA [Concomitant]
     Active Substance: MAGNESIUM HYDROXIDE
     Indication: Constipation
     Dosage: 30 ML, QD
     Route: 048
     Dates: start: 20220307
  18. ULTRAMOL [PARACETAMOL;TRAMADOL HYDROCHLORIDE] [Concomitant]
     Indication: Pain
     Dosage: 100 MILLIGRAM, Q4H
     Route: 048
     Dates: start: 20220307
  19. DULCOLAX (BISACODYL) [Concomitant]
     Active Substance: BISACODYL
     Indication: Constipation
     Dosage: 10 MILLIGRAM, QD
     Route: 048
     Dates: start: 20220307
  20. BACLOFEN [Concomitant]
     Active Substance: BACLOFEN
     Indication: Muscle spasms
     Dosage: 5-10 MILLIGRAM, BID, PRN
     Route: 048
     Dates: start: 20220301
  21. CEFAZOLIN [Concomitant]
     Active Substance: CEFAZOLIN
     Indication: Product used for unknown indication
     Dosage: 2 GRAM, SINGLE
     Route: 042
     Dates: start: 20220307
  22. CEFAZOLIN [Concomitant]
     Active Substance: CEFAZOLIN
     Dosage: 2 GRAM, Q6H
     Route: 042
     Dates: start: 20220307
  23. SODIUM CHLORIDE [Concomitant]
     Active Substance: SODIUM CHLORIDE
     Indication: Product used for unknown indication
     Dosage: 50 MILLILITER
     Route: 042
     Dates: start: 20220307
  24. SODIUM CHLORIDE [Concomitant]
     Active Substance: SODIUM CHLORIDE
     Dosage: 50 MILLILITER, Q6H
     Route: 042
     Dates: start: 20220307
  25. DEXAMETHASONE [Concomitant]
     Active Substance: DEXAMETHASONE
     Indication: Anaesthesia
     Dosage: 8 MILLIGRAM, SINGLE
     Route: 042
     Dates: start: 20220307
  26. FENTANYL [Concomitant]
     Active Substance: FENTANYL
     Indication: Anaesthesia
     Dosage: 100 MICROGRAM, SINGLE
     Route: 042
     Dates: start: 20220307
  27. FENTANYL [Concomitant]
     Active Substance: FENTANYL
     Indication: Pain
     Dosage: 25 MICROGRAM, PRN Q5MIN
     Route: 042
     Dates: start: 20220307
  28. FENTANYL [Concomitant]
     Active Substance: FENTANYL
     Dosage: UNK
  29. HYDROMORPHONE [Concomitant]
     Active Substance: HYDROMORPHONE
     Indication: Anaesthesia
     Dosage: 0.425 MILLIGRAM, SINGLE
     Route: 042
     Dates: start: 20220307
  30. HYDROMORPHONE [Concomitant]
     Active Substance: HYDROMORPHONE
     Dosage: 0.5 MILLIGRAM, SINGLE
     Route: 042
     Dates: start: 20220307
  31. LIDOCAINE [Concomitant]
     Active Substance: LIDOCAINE
     Indication: Anaesthesia
     Dosage: 100 MILLIGRAM, SINGLE
     Route: 042
     Dates: start: 20220307
  32. MIDAZOLAM [Concomitant]
     Active Substance: MIDAZOLAM
     Indication: Anaesthesia
     Dosage: 2 MILLIGRAM, SINGLE
     Route: 042
     Dates: start: 20220307
  33. PROPOFOL [Concomitant]
     Active Substance: PROPOFOL
     Indication: Anaesthesia
     Dosage: 180 MILLIGRAM, SINGLE
     Route: 042
     Dates: start: 20220307
  34. ACETAMINOPHEN [Concomitant]
     Active Substance: ACETAMINOPHEN
     Indication: Product used for unknown indication
     Dosage: 1000 MILLIGRAM, Q6H
     Route: 042
     Dates: start: 20220307
  35. ACETAMINOPHEN [Concomitant]
     Active Substance: ACETAMINOPHEN
     Dosage: 650 MILLIGRAM, Q6H
     Route: 048
  36. SCOPOLAMINE [Concomitant]
     Active Substance: SCOPOLAMINE
     Indication: Product used for unknown indication
     Dosage: 1.5 MILLIGRAM, SINGLE
     Route: 062
     Dates: start: 20220307
  37. IBUPROFEN [Concomitant]
     Active Substance: IBUPROFEN
     Indication: Product used for unknown indication
     Dosage: 800 MILLIGRAM, Q6H
     Route: 042
     Dates: start: 20220307
  38. IBUPROFEN [Concomitant]
     Active Substance: IBUPROFEN
     Dosage: 600 MILLIGRAM, Q6H
     Route: 048

REACTIONS (2)
  - Seizure like phenomena [Recovered/Resolved]
  - Product odour abnormal [Unknown]

NARRATIVE: CASE EVENT DATE: 20220307
